FAERS Safety Report 12749624 (Version 1)
Quarter: 2016Q3

REPORT INFORMATION
  Report Type: Spontaneous
  Country: CN (occurrence: CN)
  Receive Date: 20160916
  Receipt Date: 20160916
  Transmission Date: 20161109
  Serious: Yes (Other)
  Sender: FDA-Public Use
  Company Number: CN-ROCHE-1829466

PATIENT
  Age: 27 Year
  Sex: Female

DRUGS (2)
  1. GLUCOSE [Concomitant]
     Active Substance: DEXTROSE
     Route: 065
  2. ROCEPHIN [Suspect]
     Active Substance: CEFTRIAXONE SODIUM
     Indication: VAGINAL DISCHARGE
     Route: 041

REACTIONS (3)
  - Maternal exposure during pregnancy [Unknown]
  - Anaphylactic shock [Recovering/Resolving]
  - Abortion spontaneous [Unknown]
